FAERS Safety Report 7180764-7 (Version None)
Quarter: 2010Q4

REPORT INFORMATION
  Report Type: 
  Country: None (occurrence: None)
  Receive Date: 20101221
  Receipt Date: 20101217
  Transmission Date: 20110411
  Serious: Yes (Hospitalization)
  Sender: FDA-Public Use
  Company Number: CH-ABBOTT-10P-151-0692465-00

PATIENT
  Age: 68 Year
  Sex: Female

DRUGS (7)
  1. DEPAKENE [Suspect]
     Indication: EPILEPSY
     Route: 048
     Dates: start: 19950101, end: 20101106
  2. KEPPRA [Suspect]
     Indication: EPILEPSY
     Route: 048
     Dates: start: 19950101
  3. ESOMEPRAZOLE [Suspect]
     Indication: PRODUCT USED FOR UNKNOWN INDICATION
     Route: 048
  4. EXELON [Suspect]
     Indication: DEMENTIA
     Route: 062
  5. CINNAGERON [Suspect]
     Indication: PRODUCT USED FOR UNKNOWN INDICATION
     Route: 048
  6. LEVOTHYROXINE SODIUM [Suspect]
     Indication: HYPOTHYROIDISM
     Route: 048
     Dates: start: 20090101
  7. VITAMIN D [Concomitant]
     Indication: PRODUCT USED FOR UNKNOWN INDICATION

REACTIONS (7)
  - ANTICONVULSANT DRUG LEVEL INCREASED [None]
  - BICYTOPENIA [None]
  - EXTRAPYRAMIDAL DISORDER [None]
  - FALL [None]
  - HYPOALBUMINAEMIA [None]
  - MUSCULAR WEAKNESS [None]
  - WEIGHT DECREASED [None]
